FAERS Safety Report 4954135-5 (Version None)
Quarter: 2006Q1

REPORT INFORMATION
  Report Type: 
  Country: None (occurrence: None)
  Receive Date: 20060324
  Receipt Date: 20060324
  Transmission Date: 20060701
  Serious: Yes (Hospitalization)
  Sender: FDA-Public Use
  Company Number: None

PATIENT
  Age: 71 Year
  Sex: Male
  Weight: 61 kg

DRUGS (1)
  1. LISINOPRIL [Suspect]

REACTIONS (2)
  - BLOOD PRESSURE ORTHOSTATIC ABNORMAL [None]
  - SYNCOPE [None]
